FAERS Safety Report 4430624-7 (Version None)
Quarter: 2004Q3

REPORT INFORMATION
  Report Type: 
  Country: None (occurrence: None)
  Receive Date: 20040819
  Receipt Date: 20040819
  Transmission Date: 20050211
  Serious: Yes (Hospitalization)
  Sender: FDA-Public Use
  Company Number: None

PATIENT
  Sex: Male
  Weight: 88.905 kg

DRUGS (3)
  1. ATROPINE [Suspect]
     Dosage: 0.5 MG SC TID
     Route: 058
  2. HYDOCYAMINE [Suspect]
     Dosage: 0.125 MG PO TID
     Route: 048
  3. ZOSYN [Suspect]

REACTIONS (1)
  - ANGIONEUROTIC OEDEMA [None]
